FAERS Safety Report 9199797 (Version 2)
Quarter: 2013Q4

REPORT INFORMATION
  Report Type: Spontaneous
  Country: DK (occurrence: DK)
  Receive Date: 20130329
  Receipt Date: 20131216
  Transmission Date: 20140711
  Serious: Yes (Disabling)
  Sender: FDA-Public Use
  Company Number: DK-ELI_LILLY_AND_COMPANY-DK201303006802

PATIENT
  Age: 57 Year
  Sex: Male
  Weight: 72 kg

DRUGS (7)
  1. FORSTEO [Suspect]
     Indication: OSTEOPOROSIS
     Dosage: 20 UG, QD
     Route: 058
     Dates: start: 20120830, end: 20130309
  2. OXYCONTIN [Concomitant]
     Indication: BACK PAIN
  3. CENTYL MED KALIUMKLORID [Concomitant]
  4. KALEORID [Concomitant]
  5. PANODIL [Concomitant]
     Indication: NEURALGIA
  6. GABAPENTIN [Concomitant]
     Indication: PAIN
  7. ENACODAN [Concomitant]

REACTIONS (4)
  - Radiculopathy [Recovering/Resolving]
  - Bone formation increased [Unknown]
  - Cervical spinal stenosis [Unknown]
  - Osteoarthritis [Unknown]
